FAERS Safety Report 26095241 (Version 1)
Quarter: 2025Q4

REPORT INFORMATION
  Report Type: Spontaneous
  Country: CA (occurrence: CA)
  Receive Date: 20251127
  Receipt Date: 20251127
  Transmission Date: 20260117
  Serious: Yes (Hospitalization, Other)
  Sender: ACCORD
  Company Number: None

PATIENT
  Age: 76 Year
  Sex: Female

DRUGS (2)
  1. METHOTREXATE SODIUM [Suspect]
     Active Substance: METHOTREXATE SODIUM
     Indication: Crohn^s disease
  2. INFLIXIMAB [Concomitant]
     Active Substance: INFLIXIMAB
     Indication: Crohn^s disease
     Route: 042

REACTIONS (8)
  - Pleural effusion [Unknown]
  - Pulmonary oedema [Unknown]
  - Off label use [Unknown]
  - Hepatic cirrhosis [Unknown]
  - Wound [Unknown]
  - Peripheral swelling [Unknown]
  - Pneumonia [Unknown]
  - Limb injury [Unknown]
